FAERS Safety Report 9353182 (Version 1)
Quarter: 2013Q2

REPORT INFORMATION
  Report Type: Report from Study
  Country: CN (occurrence: CN)
  Receive Date: 20130618
  Receipt Date: 20130618
  Transmission Date: 20140414
  Serious: Yes (Death, Hospitalization, Other)
  Sender: FDA-Public Use
  Company Number: CN-ASTELLAS-2013US006245

PATIENT
  Age: 79 Year
  Sex: Female

DRUGS (1)
  1. ERLOTINIB TABLET [Suspect]
     Indication: NON-SMALL CELL LUNG CANCER
     Dosage: 150 MG, UID/QD
     Route: 048
     Dates: start: 20120611

REACTIONS (4)
  - Death [Fatal]
  - Abdominal distension [Unknown]
  - Abdominal pain [Unknown]
  - Metastases to peritoneum [Unknown]
